FAERS Safety Report 9771802 (Version 1)
Quarter: 2013Q4

REPORT INFORMATION
  Report Type: Spontaneous
  Country: GB (occurrence: GB)
  Receive Date: 20131219
  Receipt Date: 20131219
  Transmission Date: 20140711
  Serious: Yes (Other)
  Sender: FDA-Public Use
  Company Number: GB-RANBAXY-2013R1-76111

PATIENT
  Age: 26 Year
  Sex: Female

DRUGS (1)
  1. MINOCYCLINE [Suspect]
     Indication: ACNE
     Dosage: 50 MG, QD
     Route: 048
     Dates: start: 201201, end: 201204

REACTIONS (3)
  - Benign intracranial hypertension [Not Recovered/Not Resolved]
  - Visual field defect [Not Recovered/Not Resolved]
  - Hypermetropia [Not Recovered/Not Resolved]
